FAERS Safety Report 12170182 (Version 2)
Quarter: 2017Q1

REPORT INFORMATION
  Report Type: Spontaneous
  Country: FR (occurrence: FR)
  Receive Date: 20160311
  Receipt Date: 20170123
  Transmission Date: 20170428
  Serious: Yes (Hospitalization)
  Sender: FDA-Public Use
  Company Number: FR-009507513-1603FRA004612

PATIENT
  Age: 59 Year
  Sex: Male

DRUGS (8)
  1. KARDEGIC [Concomitant]
     Active Substance: ASPIRIN LYSINE
     Dosage: UNK
  2. ESMERON [Suspect]
     Active Substance: ROCURONIUM BROMIDE
     Indication: INDUCTION OF ANAESTHESIA
     Dosage: 80 MG, QD
     Route: 042
     Dates: start: 20160204, end: 20160204
  3. HYPNOMIDATE [Suspect]
     Active Substance: ETOMIDATE SULFATE
     Indication: INDUCTION OF ANAESTHESIA
     Dosage: 40 MG, SINGLE DOSE
     Route: 042
     Dates: start: 20160204, end: 20160204
  4. TAHOR [Concomitant]
     Active Substance: ATORVASTATIN CALCIUM
     Dosage: UNK
  5. INEXIUM (ESOMEPRAZOLE SODIUM) [Concomitant]
     Active Substance: ESOMEPRAZOLE SODIUM
     Dosage: UNK
  6. ULTIBRO BREEZEHALER [Concomitant]
     Dosage: UNK
  7. CEFAMANDOLE [Suspect]
     Active Substance: CEFAMANDOLE
     Indication: ANTIBIOTIC PROPHYLAXIS
     Dosage: 1500 MG, SINGLE DOSE
     Route: 042
     Dates: start: 20160204, end: 20160204
  8. SUFENTANIL [Suspect]
     Active Substance: SUFENTANIL
     Indication: INDUCTION OF ANAESTHESIA
     Dosage: 25 MICROGRAM, SINGLE DOSE
     Route: 042
     Dates: start: 20160204, end: 20160204

REACTIONS (4)
  - Blister [Recovered/Resolved]
  - Rash [Recovered/Resolved]
  - Anaphylactic reaction [Recovered/Resolved]
  - Angioedema [Recovered/Resolved]

NARRATIVE: CASE EVENT DATE: 20160204
